FAERS Safety Report 13615283 (Version 1)
Quarter: 2017Q2

REPORT INFORMATION
  Report Type: Spontaneous
  Country: US (occurrence: US)
  Receive Date: 20170605
  Receipt Date: 20170605
  Transmission Date: 20170830
  Serious: Yes (Hospitalization)
  Sender: FDA-Public Use
  Company Number: None

PATIENT
  Age: 81 Year
  Sex: Male

DRUGS (2)
  1. CIPROFLOXACIN. [Suspect]
     Active Substance: CIPROFLOXACIN
     Dosage: MG BID PO
     Route: 048
     Dates: start: 20121225, end: 20121226
  2. QUETIAPINE. [Suspect]
     Active Substance: QUETIAPINE
     Dosage: MG BID PO
     Route: 048
     Dates: start: 20121013, end: 20121226

REACTIONS (1)
  - Electrocardiogram QT prolonged [None]

NARRATIVE: CASE EVENT DATE: 20121227
